FAERS Safety Report 6589993-4 (Version None)
Quarter: 2010Q1

REPORT INFORMATION
  Report Type: 
  Country: None (occurrence: None)
  Receive Date: 20100219
  Receipt Date: 20100208
  Transmission Date: 20100710
  Serious: Yes (Other)
  Sender: FDA-Public Use
  Company Number: PHEH2010US02194

PATIENT
  Sex: Female

DRUGS (2)
  1. RECLAST [Suspect]
     Dosage: UNK
     Dates: start: 20080708
  2. RECLAST [Suspect]
     Dosage: UNK
     Dates: start: 20091020

REACTIONS (1)
  - SURGERY [None]
